FAERS Safety Report 9817528 (Version 1)
Quarter: 2014Q1

REPORT INFORMATION
  Report Type: Spontaneous
  Country: US (occurrence: US)
  Receive Date: 20140115
  Receipt Date: 20140115
  Transmission Date: 20141002
  Serious: No
  Sender: FDA-Public Use
  Company Number: US-009507513-1312USA010860

PATIENT
  Sex: 0

DRUGS (1)
  1. EMEND FOR INJECTION [Suspect]
     Indication: PROPHYLAXIS OF NAUSEA AND VOMITING
     Dosage: UNK
     Route: 042
     Dates: start: 20131223, end: 20131223

REACTIONS (1)
  - Infusion site extravasation [Not Recovered/Not Resolved]
